FAERS Safety Report 7601513-1 (Version None)
Quarter: 2011Q3

REPORT INFORMATION
  Report Type: 
  Country: None (occurrence: None)
  Receive Date: 20110711
  Receipt Date: 20100108
  Transmission Date: 20111222
  Serious: Yes (Death, Hospitalization, Other)
  Sender: FDA-Public Use
  Company Number: US-BAYER-201010418NA

PATIENT
  Age: 81 Year
  Sex: Male
  Weight: 75 kg

DRUGS (25)
  1. TRASYLOL [Suspect]
     Indication: CORONARY ARTERY BYPASS
     Dosage: 200 ML LOADING DOSE
     Route: 042
     Dates: start: 20040614, end: 20040614
  2. PLAVIX [Concomitant]
     Dosage: 75 MG, QD
     Route: 048
  3. ACETYLSALICYLIC ACID SRT [Concomitant]
     Dosage: 325 MG, UNK
     Dates: start: 20040605
  4. AMIODARONE HCL [Concomitant]
     Dosage: 40 MG, QD
     Route: 048
     Dates: start: 20040610
  5. VASOPRESSIN [Concomitant]
     Dosage: 0.2 UNITS/MINUTE
     Route: 042
     Dates: start: 20040614, end: 20040615
  6. RED BLOOD CELLS [Concomitant]
     Dosage: 5 U, UNK
     Route: 042
     Dates: start: 20040614, end: 20040614
  7. PLATELETS [Concomitant]
     Dosage: 16 PACKS
     Route: 042
     Dates: start: 20040614, end: 20040614
  8. ATENOLOL [Concomitant]
     Dosage: 50 MG, UNK
     Route: 048
  9. HEPARIN [Concomitant]
     Dosage: 900-1150 UNITS/HOUR
     Route: 042
     Dates: start: 20040611, end: 20040613
  10. ANCEF [Concomitant]
     Dosage: 1 MG, UNK
     Route: 042
     Dates: start: 20040614, end: 20040614
  11. FRESH FROZEN PLASMA [Concomitant]
     Dosage: 5 U
     Route: 042
     Dates: start: 20040614, end: 20040614
  12. HEPARIN [Concomitant]
     Dosage: 25000 U, UNK
     Route: 042
     Dates: start: 20040614, end: 20040614
  13. EPINEPHRINE [Concomitant]
     Dosage: 2 MCG/MIN DRIP
     Route: 042
     Dates: start: 20040614, end: 20040615
  14. MILRINONE [Concomitant]
     Dosage: 0.25 MCG/KG/MIN
     Route: 042
     Dates: start: 20040614, end: 20040615
  15. LISINOPRIL [Concomitant]
     Dosage: 40 MG, BID
     Route: 048
     Dates: start: 20040605
  16. ZOCOR [Concomitant]
     Dosage: 10 MG, QD
     Route: 048
  17. PROTAMINE SULFATE [Concomitant]
     Dosage: UNK
     Route: 042
     Dates: start: 20040614, end: 20040614
  18. TRASYLOL [Suspect]
     Dosage: 50-70 ML/HOUR
     Route: 042
     Dates: start: 20040614, end: 20040614
  19. DOXAZOSIN MESYLATE [Concomitant]
     Dosage: 2 MG, HS
     Route: 048
  20. VERSED [Concomitant]
     Dosage: 2-4 MG BOLUS
     Route: 042
  21. NORVASC [Concomitant]
     Dosage: 5 MG, BID
     Route: 048
  22. FENTANYL [Concomitant]
     Dosage: 5-10 ML BOLUS
     Route: 042
     Dates: start: 20040614, end: 20040614
  23. AMLODIPINE [Concomitant]
     Dosage: 10 MG, QD
     Route: 048
  24. PANCURONIUM [Concomitant]
     Dosage: 2 MG, UNK
     Route: 048
  25. LEVOPHED [Concomitant]
     Dosage: 0.7-2 MCG/MINUTE
     Route: 042
     Dates: start: 20040614, end: 20040614

REACTIONS (12)
  - RENAL INJURY [None]
  - RENAL FAILURE [None]
  - ANXIETY [None]
  - STRESS [None]
  - UNEVALUABLE EVENT [None]
  - INJURY [None]
  - ANHEDONIA [None]
  - DEATH [None]
  - PAIN [None]
  - RENAL IMPAIRMENT [None]
  - EMOTIONAL DISTRESS [None]
  - FEAR [None]
